FAERS Safety Report 4847665-8 (Version None)
Quarter: 2005Q4

REPORT INFORMATION
  Report Type: 
  Country: None (occurrence: None)
  Receive Date: 20051205
  Receipt Date: 20050830
  Transmission Date: 20060501
  Serious: Yes (Other)
  Sender: FDA-Public Use
  Company Number: 2005-CZ-00423

PATIENT
  Age: 65 Year
  Sex: Male

DRUGS (2)
  1. PREDNISOLONE TAB [Suspect]
     Dosage: ORAL
     Route: 048
  2. HYDROCORTISONE SODIUM SUCCINATE [Suspect]
     Dosage: 25 MG, INTRAVENOUS
     Route: 042
     Dates: start: 20050316

REACTIONS (6)
  - BRADYCARDIA [None]
  - BRONCHOSPASM [None]
  - DRUG HYPERSENSITIVITY [None]
  - HYPERHIDROSIS [None]
  - HYPOTENSION [None]
  - PALLOR [None]
